FAERS Safety Report 5560727-5 (Version None)
Quarter: 2007Q4

REPORT INFORMATION
  Report Type: 
  Country: None (occurrence: None)
  Receive Date: 20071215
  Receipt Date: 20071115
  Transmission Date: 20080405
  Serious: No
  Sender: FDA-Public Use
  Company Number: US-ABBOTT-07P-163-0425403-00

PATIENT
  Sex: Female
  Weight: 60.382 kg

DRUGS (14)
  1. HUMIRA [Suspect]
     Indication: INFLAMMATORY BOWEL DISEASE
     Dosage: LOADING DOSE
     Route: 058
     Dates: start: 20071031, end: 20071031
  2. HUMIRA [Suspect]
     Route: 058
  3. HUMIRA [Suspect]
     Route: 058
  4. ATENOLOL [Concomitant]
     Indication: CARDIAC DISORDER
     Route: 048
  5. RALOXIFENE HYDROCHLORIDE [Concomitant]
     Indication: OSTEOPOROSIS
     Route: 048
  6. BUPROPION HCL [Concomitant]
     Indication: DRUG USE FOR UNKNOWN INDICATION
     Route: 048
  7. ESOMEPRAZOLE MAGNESIUM [Concomitant]
     Indication: DRUG USE FOR UNKNOWN INDICATION
     Route: 048
  8. SINGULAIR [Concomitant]
     Indication: ASTHMA
     Route: 048
  9. AMITRIPTLINE HCL [Concomitant]
     Indication: DRUG USE FOR UNKNOWN INDICATION
     Route: 048
  10. PREDNISONE [Concomitant]
     Indication: DRUG USE FOR UNKNOWN INDICATION
     Route: 048
  11. ALPRAZOLAM [Concomitant]
     Indication: DRUG USE FOR UNKNOWN INDICATION
     Route: 048
  12. LUNESTA [Concomitant]
     Indication: DRUG USE FOR UNKNOWN INDICATION
     Route: 048
  13. TYLOX [Concomitant]
     Indication: DRUG USE FOR UNKNOWN INDICATION
     Route: 048
  14. NAUSEA MEDICATION [Concomitant]
     Indication: NAUSEA
     Route: 048

REACTIONS (6)
  - ACCIDENTAL EXPOSURE [None]
  - INFLUENZA LIKE ILLNESS [None]
  - RASH MACULAR [None]
  - RASH MACULO-PAPULAR [None]
  - RASH PRURITIC [None]
  - TONGUE ULCERATION [None]
